FAERS Safety Report 4530587-X (Version None)
Quarter: 2004Q4

REPORT INFORMATION
  Report Type: 
  Country: None (occurrence: None)
  Receive Date: 20041216
  Receipt Date: 20041125
  Transmission Date: 20050328
  Serious: Yes (Hospitalization, Other)
  Sender: FDA-Public Use
  Company Number: JP_041105265

PATIENT
  Age: 73 Year
  Sex: Male

DRUGS (2)
  1. VANCOMYCIN [Suspect]
     Indication: SPONDYLITIS
  2. VANCOMYCIN [Suspect]
     Indication: STAPHYLOCOCCAL INFECTION

REACTIONS (4)
  - DISEASE RECURRENCE [None]
  - DRUG ERUPTION [None]
  - PYREXIA [None]
  - SPONDYLITIS [None]
